FAERS Safety Report 10520120 (Version 6)
Quarter: 2015Q2

REPORT INFORMATION
  Report Type: Spontaneous
  Country: ES (occurrence: ES)
  Receive Date: 20141015
  Receipt Date: 20150521
  Transmission Date: 20150821
  Serious: Yes (Other)
  Sender: FDA-Public Use
  Company Number: ES-AMGEN-ESPSP2014050741

PATIENT
  Age: 56 Year
  Sex: Female

DRUGS (9)
  1. ENBREL [Suspect]
     Active Substance: ETANERCEPT
     Dosage: UNK
     Route: 065
  2. EUTIROX [Concomitant]
     Active Substance: LEVOTHYROXINE SODIUM
     Indication: HYPOTHYROIDISM
     Dosage: 100 MG, ONCE A DAY IN THE MORNINGS
  3. ACFOL [Concomitant]
     Active Substance: FOLIC ACID
     Dosage: 5 MG, ONE WEEKLY ON WEDNESDAY
  4. ENBREL [Suspect]
     Active Substance: ETANERCEPT
     Dosage: UNK
     Route: 065
  5. ENBREL [Suspect]
     Active Substance: ETANERCEPT
     Dosage: UNK
     Route: 065
  6. METOTREXATO                        /00113801/ [Concomitant]
     Active Substance: METHOTREXATE
     Indication: SPONDYLITIS
     Dosage: 15 MG (2.5 MGX 6 TABLETS), ONCE WEEKLY ON TUESDAYS
     Route: 048
  7. ENALAPRIL MALEATE. [Concomitant]
     Active Substance: ENALAPRIL MALEATE
     Indication: BLOOD PRESSURE INCREASED
     Dosage: 5 MG, ONCE IN 24 HOURS
  8. ENBREL [Suspect]
     Active Substance: ETANERCEPT
     Indication: PRODUCT USED FOR UNKNOWN INDICATION
     Dosage: 50 MG, WEEKLY, ON MONDAYS
     Route: 058
     Dates: start: 20140527
  9. LORAZEPAM. [Concomitant]
     Active Substance: LORAZEPAM
     Indication: INSOMNIA
     Dosage: 1 G, ONE EVERY 24 HOURS AT NIGHT

REACTIONS (17)
  - Malaise [Recovered/Resolved]
  - Blood pressure increased [Recovering/Resolving]
  - Injection site pain [Recovered/Resolved]
  - Nervousness [Unknown]
  - Hypersensitivity [Unknown]
  - Drug ineffective [Unknown]
  - Injection site discolouration [Recovered/Resolved]
  - Back pain [Recovering/Resolving]
  - Cerebrovascular accident [Recovering/Resolving]
  - Drug dependence [Unknown]
  - Exostosis [Unknown]
  - Drug intolerance [Unknown]
  - Injection site pruritus [Recovered/Resolved]
  - Injection site warmth [Unknown]
  - Injection site haematoma [Recovered/Resolved]
  - Abdominal pain [Unknown]
  - Injection site erythema [Recovered/Resolved]

NARRATIVE: CASE EVENT DATE: 2014
